FAERS Safety Report 20077373 (Version 1)
Quarter: 2021Q4

REPORT INFORMATION
  Report Type: Spontaneous
  Country: None (occurrence: PT)
  Receive Date: 20211116
  Receipt Date: 20211116
  Transmission Date: 20220304
  Serious: Yes (Hospitalization, Other)
  Sender: FDA-Public Use
  Company Number: PT-Canton Laboratories, LLC-2121925

PATIENT
  Age: 37 Year
  Sex: Female

DRUGS (3)
  1. NAPROSYN [Suspect]
     Active Substance: NAPROXEN
     Indication: Product used for unknown indication
     Route: 065
  2. DIETARY SUPPLEMENT [Suspect]
     Active Substance: DIETARY SUPPLEMENT
     Route: 065
  3. CYCLOBENZAPRINE [Suspect]
     Active Substance: CYCLOBENZAPRINE
     Route: 065

REACTIONS (3)
  - Toxicity to various agents [Recovering/Resolving]
  - Thrombocytopenia [Unknown]
  - Serotonin syndrome [Recovering/Resolving]
